FAERS Safety Report 9580845 (Version 1)
Quarter: 2013Q4

REPORT INFORMATION
  Report Type: Spontaneous
  Country: BE (occurrence: BE)
  Receive Date: 20131002
  Receipt Date: 20131002
  Transmission Date: 20140711
  Serious: Yes (Death, Other)
  Sender: FDA-Public Use
  Company Number: BE-SA-2013SA095479

PATIENT
  Age: 75 Year
  Sex: Female
  Weight: 115 kg

DRUGS (3)
  1. CLEXANE [Suspect]
     Indication: ATRIAL FIBRILLATION
     Route: 065
  2. CLEXANE [Suspect]
     Indication: ATRIAL FIBRILLATION
     Route: 065
  3. PRADAXA [Concomitant]

REACTIONS (3)
  - Death [Fatal]
  - Renal impairment [Unknown]
  - Cardiac arrest [Unknown]
